FAERS Safety Report 6713149-5 (Version None)
Quarter: 2010Q2

REPORT INFORMATION
  Report Type: 
  Country: None (occurrence: None)
  Receive Date: 20100506
  Receipt Date: 20100422
  Transmission Date: 20101027
  Serious: Yes (Other)
  Sender: FDA-Public Use
  Company Number: PHHY2010CA16436

PATIENT
  Sex: Female

DRUGS (1)
  1. CLOZARIL [Suspect]
     Dosage: UNK
     Dates: start: 20001221, end: 20100301

REACTIONS (3)
  - CARDIAC OPERATION [None]
  - CORONARY ARTERY BYPASS [None]
  - HYPOTENSION [None]
